FAERS Safety Report 9053873 (Version 1)
Quarter: 2013Q1

REPORT INFORMATION
  Report Type: Spontaneous
  Country: US (occurrence: None)
  Receive Date: 20130201
  Receipt Date: 20130201
  Transmission Date: 20140127
  Serious: Yes (Life-Threatening, Hospitalization, Other)
  Sender: FDA-Public Use
  Company Number: None

PATIENT
  Age: 75 Year
  Sex: Female
  Weight: 73.94 kg

DRUGS (2)
  1. LISINOPRIL [Suspect]
     Indication: BLOOD PRESSURE
     Dates: start: 20100110, end: 20100702
  2. HYDROCHLOROTHIAZIDE [Suspect]
     Dates: start: 20101227, end: 2012

REACTIONS (7)
  - Lip swelling [None]
  - Oedema mouth [None]
  - Dyspnoea [None]
  - Local swelling [None]
  - Gait disturbance [None]
  - Pain in extremity [None]
  - Swollen tongue [None]
